FAERS Safety Report 10238938 (Version 1)
Quarter: 2014Q2

REPORT INFORMATION
  Report Type: Spontaneous
  Country: JP (occurrence: JP)
  Receive Date: 20140616
  Receipt Date: 20140616
  Transmission Date: 20141212
  Serious: Yes (Death, Other)
  Sender: FDA-Public Use
  Company Number: JP-ASTELLAS-2014JP010325

PATIENT
  Age: 9 Decade
  Sex: Male

DRUGS (2)
  1. XTANDI [Suspect]
     Indication: HORMONE-REFRACTORY PROSTATE CANCER
     Route: 048
     Dates: start: 20140528, end: 20140609
  2. DOCETAXEL [Concomitant]
     Indication: PROSTATE CANCER
     Dosage: UNK UNK, UNKNOWN FREQ.
     Route: 065
     Dates: start: 2013

REACTIONS (1)
  - Prostate cancer [Fatal]
